FAERS Safety Report 8940902 (Version 2)
Quarter: 2012Q4

REPORT INFORMATION
  Report Type: 
  Country: US (occurrence: US)
  Receive Date: 20121203
  Receipt Date: 20121217
  Transmission Date: 20130627
  Serious: Yes (Death, Hospitalization)
  Sender: FDA-Public Use
  Company Number: US-B.I. PHARMACEUTICALS,INC./RIDGEFIELD-2012-BI-01514BP

PATIENT
  Age: 79 Year
  Sex: Female

DRUGS (5)
  1. PRADAXA [Suspect]
     Indication: CEREBROVASCULAR ACCIDENT PROPHYLAXIS
     Dosage: 300 mg
     Route: 048
     Dates: start: 201203
  2. PRADAXA [Suspect]
     Indication: ATRIAL FIBRILLATION
  3. STATIN [Concomitant]
     Indication: HYPERCHOLESTEROLAEMIA
  4. BETA BLOCKER [Concomitant]
     Indication: HYPERTENSION
  5. CARDIZEM [Concomitant]
     Indication: HYPERTENSION

REACTIONS (2)
  - Cerebral haemorrhage [Fatal]
  - Headache [Unknown]
